FAERS Safety Report 5294407-0 (Version None)
Quarter: 2007Q2

REPORT INFORMATION
  Report Type: 
  Country: None (occurrence: None)
  Receive Date: 20070412
  Receipt Date: 20070403
  Transmission Date: 20071010
  Serious: Yes (Death)
  Sender: FDA-Public Use
  Company Number: PHBS2007IN06012

PATIENT
  Age: 11 Year
  Sex: Male

DRUGS (5)
  1. CYCLOSPORINE [Suspect]
     Indication: APLASTIC ANAEMIA
     Route: 065
     Dates: start: 19991201, end: 20030401
  2. CYCLOSPORINE [Suspect]
     Route: 065
     Dates: start: 20030601
  3. CYCLOSPORINE [Suspect]
     Route: 065
     Dates: start: 20031101
  4. ANTILYMPHOCYTE GLOBULIN [Concomitant]
     Indication: APLASTIC ANAEMIA
     Dates: start: 19991201
  5. ANTILYMPHOCYTE GLOBULIN [Concomitant]
     Dates: start: 20031101

REACTIONS (18)
  - ACUTE MONOCYTIC LEUKAEMIA [None]
  - DISSEMINATED INTRAVASCULAR COAGULATION [None]
  - GINGIVAL HYPERTROPHY [None]
  - HAEMOGLOBIN DECREASED [None]
  - HEPATOSPLENOMEGALY [None]
  - LOWER RESPIRATORY TRACT INFECTION [None]
  - LUNG CONSOLIDATION [None]
  - LYMPHADENOPATHY [None]
  - MYELOBLAST COUNT INCREASED [None]
  - ORCHITIS [None]
  - PALLOR [None]
  - PLATELET COUNT DECREASED [None]
  - PLEURAL EFFUSION [None]
  - PNEUMONIA [None]
  - PNEUMONITIS [None]
  - PYREXIA [None]
  - SEPSIS [None]
  - WHITE BLOOD CELL COUNT INCREASED [None]
